FAERS Safety Report 16505853 (Version 1)
Quarter: 2019Q3

REPORT INFORMATION
  Report Type: Spontaneous
  Country: US (occurrence: US)
  Receive Date: 20190701
  Receipt Date: 20190701
  Transmission Date: 20191004
  Serious: No
  Sender: FDA-Public Use
  Company Number: US-CLOVIS ONCOLOGY-CLO-2019-000648

PATIENT
  Age: 68 Year
  Sex: Female

DRUGS (6)
  1. REGLAN [Suspect]
     Active Substance: METOCLOPRAMIDE HYDROCHLORIDE
     Indication: NAUSEA
     Dosage: UNK
  2. TRAZODONE [Concomitant]
     Active Substance: TRAZODONE HYDROCHLORIDE
     Indication: DEPRESSION
     Dosage: 150 MG, UNK
  3. REQUIP [Concomitant]
     Active Substance: ROPINIROLE HYDROCHLORIDE
     Indication: RESTLESS LEGS SYNDROME
     Dosage: AT BEDTIME
  4. RUBRACA [Suspect]
     Active Substance: RUCAPARIB CAMSYLATE
     Indication: FALLOPIAN TUBE CANCER STAGE IV
     Dosage: 600 MG, BID
     Route: 048
     Dates: start: 20190209, end: 2019
  5. LODOL [Concomitant]
     Indication: PRODUCT USED FOR UNKNOWN INDICATION
  6. AMLODIPINE [Concomitant]
     Active Substance: AMLODIPINE BESYLATE
     Indication: POOR PERIPHERAL CIRCULATION

REACTIONS (7)
  - Nausea [Not Recovered/Not Resolved]
  - Therapeutic response unexpected [Unknown]
  - Restless legs syndrome [Unknown]
  - Adverse event [Unknown]
  - Constipation [Recovering/Resolving]
  - Upper-airway cough syndrome [Not Recovered/Not Resolved]
  - Fatigue [Not Recovered/Not Resolved]

NARRATIVE: CASE EVENT DATE: 2019
